FAERS Safety Report 8165747-2 (Version None)
Quarter: 2012Q1

REPORT INFORMATION
  Report Type: 
  Country: None (occurrence: None)
  Receive Date: 20120227
  Receipt Date: 20110114
  Transmission Date: 20120608
  Serious: No
  Sender: FDA-Public Use
  Company Number: US-MYLANLABS-2011S1000996

PATIENT
  Age: 18 Year
  Sex: Female

DRUGS (4)
  1. AMNESTEEM [Suspect]
     Route: 048
     Dates: start: 20101101, end: 20101130
  2. AMNESTEEM [Suspect]
     Indication: ACNE
     Route: 048
     Dates: start: 20101001, end: 20101001
  3. ORAL CONTRACEPTIVE NOS [Concomitant]
     Route: 048
  4. AMNESTEEM [Suspect]
     Route: 048
     Dates: start: 20101101, end: 20101130

REACTIONS (2)
  - EPISTAXIS [None]
  - BACK PAIN [None]
